FAERS Safety Report 21688381 (Version 2)
Quarter: 2022Q4

REPORT INFORMATION
  Report Type: Spontaneous
  Country: US (occurrence: US)
  Receive Date: 20221206
  Receipt Date: 20221220
  Transmission Date: 20230112
  Serious: Yes (Other)
  Sender: FDA-Public Use
  Company Number: US-BAYER-2022P025209

PATIENT
  Age: 19 Year
  Sex: Male

DRUGS (1)
  1. KOVALTRY [Suspect]
     Active Substance: ANTIHEMOPHILIC FACTOR, HUMAN RECOMBINANT
     Dosage: 1700/3385 UNITS +/-10%. USED 1 ADDITTIONAL PROPHY DOSE EVERY DAY FOR 4 DAYS.

REACTIONS (2)
  - Haemarthrosis [None]
  - Ligament sprain [None]

NARRATIVE: CASE EVENT DATE: 20221107
